FAERS Safety Report 15538313 (Version 1)
Quarter: 2018Q4

REPORT INFORMATION
  Report Type: Spontaneous
  Country: CN (occurrence: US)
  Receive Date: 20181022
  Receipt Date: 20181022
  Transmission Date: 20190205
  Serious: Yes (Hospitalization)
  Sender: FDA-Public Use
  Company Number: CN-MYLANLABS-2018M1078708

PATIENT
  Age: 5 Decade
  Sex: Female

DRUGS (3)
  1. METFORMIN [Concomitant]
     Active Substance: METFORMIN HYDROCHLORIDE
     Indication: TYPE 2 DIABETES MELLITUS
     Dosage: 500 MG THRICE A DAY
     Route: 048
  2. ACARBOSE. [Concomitant]
     Active Substance: ACARBOSE
     Indication: TYPE 2 DIABETES MELLITUS
     Dosage: 50MG THRICE A DAY
     Route: 048
  3. IBUPROFEN. [Suspect]
     Active Substance: IBUPROFEN
     Indication: DYSMENORRHOEA
     Dosage: FOR 2-3 DAYS EVERY MONTH WITH A TOTAL OF SIX MONTHS
     Route: 048

REACTIONS (4)
  - Vanishing bile duct syndrome [Not Recovered/Not Resolved]
  - Hyperlipidaemia [Recovered/Resolved]
  - Drug-induced liver injury [Not Recovered/Not Resolved]
  - Cholestasis [Not Recovered/Not Resolved]
